FAERS Safety Report 15259108 (Version 1)
Quarter: 2018Q3

REPORT INFORMATION
  Report Type: Report from Study
  Country: SE (occurrence: SE)
  Receive Date: 20180809
  Receipt Date: 20180809
  Transmission Date: 20181010
  Serious: Yes (Other)
  Sender: FDA-Public Use
  Company Number: SE-ROCHE-2165697

PATIENT

DRUGS (1)
  1. RITUXIMAB. [Suspect]
     Active Substance: RITUXIMAB
     Indication: MULTIPLE SCLEROSIS
     Route: 065

REACTIONS (12)
  - Psoriasis [Unknown]
  - Arthralgia [Unknown]
  - Urticaria [Unknown]
  - Upper respiratory tract infection [Unknown]
  - Sinusitis [Unknown]
  - Hepatobiliary disease [Unknown]
  - Off label use [Unknown]
  - Neutropenia [Unknown]
  - Colorectal cancer [Unknown]
  - Fatigue [Unknown]
  - Urinary tract infection [Unknown]
  - Headache [Unknown]
